FAERS Safety Report 7675646 (Version 2)
Quarter: 2013Q2

REPORT INFORMATION
  Report Type: Spontaneous
  Country: US (occurrence: US)
  Receive Date: 20101119
  Receipt Date: 20130513
  Transmission Date: 20140414
  Serious: Yes (Death, Hospitalization)
  Sender: FDA-Public Use
  Company Number: US-JNJFOC-20101105371

PATIENT
  Sex: Female

DRUGS (1)
  1. DURAGESIC [Suspect]
     Indication: BACK PAIN
     Route: 062
     Dates: start: 2003, end: 2003

REACTIONS (3)
  - Death [Fatal]
  - Cerebrovascular accident [Unknown]
  - Adverse event [Unknown]
